FAERS Safety Report 4728174-3 (Version None)
Quarter: 2005Q3

REPORT INFORMATION
  Report Type: 
  Country: None (occurrence: None)
  Receive Date: 20050727
  Receipt Date: 20050727
  Transmission Date: 20060218
  Serious: Yes (Hospitalization)
  Sender: FDA-Public Use
  Company Number: None

PATIENT
  Age: 54 Year
  Sex: Male

DRUGS (1)
  1. LISINOPRIL [Suspect]
     Indication: HYPERTENSION
     Dosage: 40MG DAILY ORAL
     Route: 048

REACTIONS (8)
  - ANGIONEUROTIC OEDEMA [None]
  - ARTHROPOD BITE [None]
  - DYSPNOEA [None]
  - LOCAL SWELLING [None]
  - PHARYNGEAL OEDEMA [None]
  - RASH [None]
  - SWELLING FACE [None]
  - URTICARIA [None]
